FAERS Safety Report 19761497 (Version 2)
Quarter: 2021Q3

REPORT INFORMATION
  Report Type: Report from Study
  Country: US (occurrence: US)
  Receive Date: 20210830
  Receipt Date: 20210917
  Transmission Date: 20211014
  Serious: Yes (Hospitalization, Other)
  Sender: FDA-Public Use
  Company Number: NVSC2021US188504

PATIENT
  Age: 66 Year
  Sex: Male

DRUGS (3)
  1. ENTRESTO [Suspect]
     Active Substance: SACUBITRIL\VALSARTAN
     Dosage: UNK
     Route: 065
  2. METOPROLOL. [Suspect]
     Active Substance: METOPROLOL
     Indication: PRODUCT USED FOR UNKNOWN INDICATION
     Dosage: 25 MG
     Route: 065
  3. ENTRESTO [Suspect]
     Active Substance: SACUBITRIL\VALSARTAN
     Indication: PRODUCT USED FOR UNKNOWN INDICATION
     Dosage: 50 MG, BID
     Route: 065
     Dates: start: 20210620, end: 20210716

REACTIONS (14)
  - Circulatory collapse [Recovering/Resolving]
  - Coronary artery occlusion [Recovering/Resolving]
  - Rash [Unknown]
  - Balance disorder [Not Recovered/Not Resolved]
  - Vertigo [Not Recovered/Not Resolved]
  - Herpes zoster [Recovering/Resolving]
  - Dizziness [Unknown]
  - Cardiac arrest [Recovering/Resolving]
  - Hypotension [Not Recovered/Not Resolved]
  - Pain [Recovering/Resolving]
  - Gait inability [Not Recovered/Not Resolved]
  - Ventricular tachycardia [Recovering/Resolving]
  - Skin lesion [Recovering/Resolving]
  - Collateral circulation [Recovering/Resolving]

NARRATIVE: CASE EVENT DATE: 202107
